FAERS Safety Report 5227518-6 (Version None)
Quarter: 2007Q1

REPORT INFORMATION
  Report Type: 
  Country: None (occurrence: None)
  Receive Date: 20070202
  Receipt Date: 20070123
  Transmission Date: 20070707
  Serious: Yes (Hospitalization)
  Sender: FDA-Public Use
  Company Number: US-SHR-US-2007-000260

PATIENT
  Age: 61 Year
  Sex: Female
  Weight: 69.388 kg

DRUGS (5)
  1. BETASERON [Suspect]
     Dosage: 8 MIU, EVERY 2D
     Route: 058
     Dates: start: 20060706
  2. PREMPRO [Concomitant]
     Indication: MENOPAUSE
     Dosage: .625 UNK, UNK
  3. DULOXETIN (CYMBALTA) [Concomitant]
     Indication: PAIN
     Dosage: 60 MG, UNK
  4. LIPITOR [Concomitant]
     Dosage: 10 MG, UNK
  5. REQUIP [Concomitant]
     Dosage: .5 MG, UNK

REACTIONS (4)
  - HEADACHE [None]
  - JUDGEMENT IMPAIRED [None]
  - PERSONALITY CHANGE [None]
  - SUICIDE ATTEMPT [None]
